FAERS Safety Report 7621962-5 (Version None)
Quarter: 2011Q3

REPORT INFORMATION
  Report Type: 
  Country: None (occurrence: None)
  Receive Date: 20110720
  Receipt Date: 20101214
  Transmission Date: 20111222
  Serious: Yes (Life-Threatening, Hospitalization)
  Sender: FDA-Public Use
  Company Number: JP-BAYER-2010-000051

PATIENT
  Age: 72 Year
  Sex: Female
  Weight: 52 kg

DRUGS (10)
  1. ACETAMINOPHEN [Concomitant]
     Indication: BRONCHIOLITIS
     Dosage: DAILY DOSE 3 DF
     Route: 048
     Dates: start: 20100526, end: 20100526
  2. METHY F [Concomitant]
     Indication: BRONCHIOLITIS
     Dosage: DAILY DOSE 3 DF
     Route: 048
     Dates: start: 20100526, end: 20100526
  3. ASPIRIN [Suspect]
     Indication: CEREBRAL ARTERY STENOSIS
     Dosage: DAILY DOSE 100 MG
     Route: 048
     Dates: start: 20100526, end: 20100527
  4. CLEMASTINE FUMARATE [Concomitant]
     Indication: BRONCHIOLITIS
     Dosage: DAILY DOSE 3 DF
     Route: 048
     Dates: start: 20100526, end: 20100526
  5. OTHER ANALGESICS AND ANTIPYRETICS [Suspect]
     Dosage: UNK
     Route: 062
  6. OTHER ANALGESICS AND ANTIPYRETICS [Suspect]
     Route: 061
  7. ASVERIN [Concomitant]
     Indication: BRONCHIOLITIS
     Dosage: DAILY DOSE 3 DF
     Route: 048
     Dates: start: 20100526, end: 20100526
  8. LEFTOSE [Concomitant]
     Indication: BRONCHIOLITIS
     Dosage: DAILY DOSE 3 DF
     Route: 048
     Dates: start: 20100526, end: 20100526
  9. MEBRON [Concomitant]
     Indication: BRONCHIOLITIS
     Dosage: DAILY DOSE 3 DF
     Route: 048
     Dates: start: 20100526, end: 20100526
  10. CLARITHROMYCIN [Concomitant]
     Indication: BRONCHIOLITIS
     Dosage: DAILY DOSE 400 MG
     Route: 048
     Dates: start: 20100526, end: 20100526

REACTIONS (3)
  - ANALGESIC ASTHMA SYNDROME [None]
  - WHEEZING [None]
  - ORTHOPNOEA [None]
